FAERS Safety Report 7500879-0 (Version None)
Quarter: 2011Q2

REPORT INFORMATION
  Report Type: 
  Country: None (occurrence: None)
  Receive Date: 20110524
  Receipt Date: 20110518
  Transmission Date: 20111010
  Serious: Yes (Hospitalization)
  Sender: FDA-Public Use
  Company Number: B0683753A

PATIENT
  Age: 20 Year
  Sex: Female

DRUGS (2)
  1. DEPAKENE [Suspect]
     Indication: EPILEPSY
     Dosage: 500MG UNKNOWN
     Route: 048
     Dates: start: 20040101, end: 20101001
  2. LAMICTAL [Suspect]
     Indication: EPILEPSY
     Dosage: 25MG PER DAY
     Route: 048
     Dates: start: 20100901, end: 20101001

REACTIONS (13)
  - DRY EYE [None]
  - STEVENS-JOHNSON SYNDROME [None]
  - RASH [None]
  - DYSPHAGIA [None]
  - INFLAMMATION [None]
  - SKIN DISORDER [None]
  - INCORRECT DOSE ADMINISTERED [None]
  - ORAL DISORDER [None]
  - TOXIC SKIN ERUPTION [None]
  - PYREXIA [None]
  - RASH ERYTHEMATOUS [None]
  - PIGMENTATION DISORDER [None]
  - ASTHENIA [None]
